FAERS Safety Report 5914666-8 (Version None)
Quarter: 2008Q4

REPORT INFORMATION
  Report Type: 
  Country: None (occurrence: None)
  Receive Date: 20081008
  Receipt Date: 20080923
  Transmission Date: 20090506
  Serious: Yes (Hospitalization)
  Sender: FDA-Public Use
  Company Number: 2008BI003335

PATIENT
  Age: 55 Year
  Sex: Female

DRUGS (8)
  1. TYSABRI [Suspect]
     Indication: MULTIPLE SCLEROSIS
     Dosage: 300 MG;QM; IV;
     Route: 042
     Dates: start: 20070817, end: 20071214
  2. TYSABRI [Suspect]
     Indication: MULTIPLE SCLEROSIS
     Dosage: 300 MG;QM; IV;
     Route: 042
     Dates: start: 20080814, end: 20080814
  3. AVONEX (CON.) [Concomitant]
  4. NITROFUMANTOIN (CON.) [Concomitant]
  5. PERCOCET (CON.) [Concomitant]
  6. TORADOL (CON.) [Concomitant]
  7. AVONEX (PREV.) [Concomitant]
  8. . [Concomitant]

REACTIONS (7)
  - BACK PAIN [None]
  - BLOOD PRESSURE INCREASED [None]
  - CROSS SENSITIVITY REACTION [None]
  - DRUG HYPERSENSITIVITY [None]
  - HYPOAESTHESIA [None]
  - MULTIPLE SCLEROSIS RELAPSE [None]
  - REFUSAL OF TREATMENT BY PATIENT [None]
